FAERS Safety Report 18734085 (Version 1)
Quarter: 2021Q1

REPORT INFORMATION
  Report Type: Spontaneous
  Country: US (occurrence: US)
  Receive Date: 20210113
  Receipt Date: 20210113
  Transmission Date: 20210419
  Serious: Yes (Other)
  Sender: FDA-Public Use
  Company Number: US-AMGEN-USASP2021002792

PATIENT
  Age: 73 Year
  Sex: Female

DRUGS (3)
  1. PROLIA [Suspect]
     Active Substance: DENOSUMAB
     Indication: OSTEOPOROSIS POSTMENOPAUSAL
     Dosage: UNK
     Route: 065
  2. ECHINACEA EXTRACT [ECHINACEA PURPUREA EXTRACT] [Concomitant]
     Dosage: UNK
  3. ELDERBERRY [SAMBUCUS NIGRA FRUIT] [Concomitant]
     Dosage: UNK

REACTIONS (6)
  - Insomnia [Unknown]
  - Spinal fracture [Unknown]
  - Hypotension [Unknown]
  - Constipation [Unknown]
  - Dizziness [Unknown]
  - Sciatica [Unknown]

NARRATIVE: CASE EVENT DATE: 202008
